FAERS Safety Report 6786753-6 (Version None)
Quarter: 2010Q2

REPORT INFORMATION
  Report Type: 
  Country: None (occurrence: None)
  Receive Date: 20100623
  Receipt Date: 20100611
  Transmission Date: 20101027
  Serious: Yes (Other)
  Sender: FDA-Public Use
  Company Number: US-ELI_LILLY_AND_COMPANY-US201005006429

PATIENT
  Sex: Female

DRUGS (9)
  1. FORTEO [Suspect]
     Indication: OSTEOPOROSIS
     Dosage: 20 UG, DAILY (1/D)
     Dates: start: 20090901
  2. LISINOPRIL [Concomitant]
     Dosage: 5 MG, DAILY (1/D)
  3. ACTOS [Concomitant]
     Dosage: 45 MG, DAILY (1/D)
  4. XANAX [Concomitant]
     Dosage: 0.25 MG, 3/D
  5. ASPIRIN LOW [Concomitant]
     Dosage: 81 MG, DAILY (1/D)
  6. CRESTOR [Concomitant]
     Dosage: 10 MG, DAILY (1/D)
  7. LEVOTHYROXINE SODIUM [Concomitant]
     Dosage: 112 UG, DAILY (1/D)
  8. CINNAMIN /00192601/ [Concomitant]
     Dosage: 500 MG, DAILY (1/D)
  9. FLAXSEED OIL [Concomitant]
     Dosage: 1000 MG, DAILY (1/D)

REACTIONS (2)
  - HEART RATE DECREASED [None]
  - TRANSIENT ISCHAEMIC ATTACK [None]
